FAERS Safety Report 9647580 (Version 1)
Quarter: 2013Q4

REPORT INFORMATION
  Report Type: Spontaneous
  Country: US (occurrence: US)
  Receive Date: 20131028
  Receipt Date: 20131028
  Transmission Date: 20140711
  Serious: Yes (Hospitalization)
  Sender: FDA-Public Use
  Company Number: US-BIOGENIDEC-2013BI101526

PATIENT
  Age: 54 Year
  Sex: Female

DRUGS (3)
  1. TYSABRI [Suspect]
     Indication: MULTIPLE SCLEROSIS
     Route: 042
     Dates: start: 20100428
  2. HYPERAL [Concomitant]
     Indication: MEDICAL DIET
     Route: 042
     Dates: start: 2000
  3. MORPHINE [Concomitant]
     Indication: ABDOMINAL PAIN
     Route: 048

REACTIONS (8)
  - Diverticulitis [Recovered/Resolved]
  - Abdominal pain lower [Recovered/Resolved]
  - Nausea [Recovered/Resolved]
  - Headache [Recovered/Resolved]
  - Vomiting [Recovered/Resolved]
  - Overdose [Recovered/Resolved]
  - Respiration abnormal [Recovered/Resolved]
  - Asthenia [Not Recovered/Not Resolved]
